FAERS Safety Report 10477774 (Version 4)
Quarter: 2015Q1

REPORT INFORMATION
  Report Type: Report from Study
  Country: CA (occurrence: CA)
  Receive Date: 20140926
  Receipt Date: 20150224
  Transmission Date: 20150720
  Serious: Yes (Other)
  Sender: FDA-Public Use
  Company Number: CA-AMGEN-CANNI2014073151

PATIENT
  Age: 71 Year
  Sex: Male

DRUGS (14)
  1. GLYBURIDE. [Concomitant]
     Active Substance: GLYBURIDE
  2. NOVASEN [Concomitant]
  3. ZOMETA [Concomitant]
     Active Substance: ZOLEDRONIC ACID
  4. METFORMIN [Concomitant]
     Active Substance: METFORMIN HYDROCHLORIDE
  5. TAXOTERE [Concomitant]
     Active Substance: DOCETAXEL
     Indication: NEOPLASM MALIGNANT
  6. HYDRINE                            /00137301/ [Concomitant]
  7. DENOSUMAB [Suspect]
     Active Substance: DENOSUMAB
     Indication: PRODUCT USED FOR UNKNOWN INDICATION
     Dosage: UNK
     Route: 065
  8. TELMISARTAN. [Concomitant]
     Active Substance: TELMISARTAN
  9. TYLENOL [Concomitant]
     Active Substance: ACETAMINOPHEN
  10. XGEVA [Suspect]
     Active Substance: DENOSUMAB
     Indication: METASTASES TO BONE
     Dosage: 120 MG, Q4WK
     Route: 058
     Dates: start: 20130930, end: 20130930
  11. OXYCODONE HYDROCHLORIDE AND ACETAMINOPHEN [Concomitant]
     Active Substance: ACETAMINOPHEN\OXYCODONE HYDROCHLORIDE
  12. VIAGRA [Concomitant]
     Active Substance: SILDENAFIL CITRATE
  13. AMLODIPINE [Concomitant]
     Active Substance: AMLODIPINE BESYLATE
  14. LORAZEPAM. [Concomitant]
     Active Substance: LORAZEPAM

REACTIONS (1)
  - Osteonecrosis of jaw [Not Recovered/Not Resolved]

NARRATIVE: CASE EVENT DATE: 20140414
